FAERS Safety Report 17916530 (Version 1)
Quarter: 2020Q2

REPORT INFORMATION
  Report Type: Spontaneous
  Country: CA (occurrence: CA)
  Receive Date: 20200619
  Receipt Date: 20200619
  Transmission Date: 20200714
  Serious: Yes (Hospitalization)
  Sender: FDA-Public Use
  Company Number: CA-TEVA-2020-CA-1789853

PATIENT
  Sex: Female

DRUGS (6)
  1. GEMCITABINE HYDROCHLORIDE. [Suspect]
     Active Substance: GEMCITABINE HYDROCHLORIDE
     Indication: OVARIAN CANCER
     Route: 065
  2. CANNABIS SATIVA [Concomitant]
     Active Substance: CANNABIS SATIVA FLOWERING TOP
  3. SIMVASTATIN. [Suspect]
     Active Substance: SIMVASTATIN
     Indication: OVARIAN CANCER
     Route: 042
  4. ACETAMINOPHEN. [Concomitant]
     Active Substance: ACETAMINOPHEN
     Route: 048
  5. DIPHENHYDRAMINE. [Concomitant]
     Active Substance: DIPHENHYDRAMINE
     Route: 048
  6. MONTELUKAST SODIUM. [Concomitant]
     Active Substance: MONTELUKAST SODIUM

REACTIONS (9)
  - Arthralgia [Unknown]
  - Photophobia [Unknown]
  - Intra-abdominal fluid collection [Unknown]
  - Blood pressure increased [Unknown]
  - Upper respiratory tract infection [Unknown]
  - Dry eye [Unknown]
  - Eye pain [Unknown]
  - Epistaxis [Unknown]
  - Malaise [Unknown]
